FAERS Safety Report 7267831-4 (Version None)
Quarter: 2011Q1

REPORT INFORMATION
  Report Type: 
  Country: None (occurrence: None)
  Receive Date: 20110201
  Receipt Date: 20110126
  Transmission Date: 20110831
  Serious: Yes (Hospitalization)
  Sender: FDA-Public Use
  Company Number: B0696406A

PATIENT
  Age: 44 Year
  Sex: Male

DRUGS (1)
  1. AVANDIA [Suspect]
     Dosage: 2MG PER DAY
     Route: 048

REACTIONS (7)
  - CARDIOVASCULAR DISORDER [None]
  - HEART VALVE INCOMPETENCE [None]
  - VENTRICULAR HYPOKINESIA [None]
  - DIABETES MELLITUS [None]
  - CARDIOMYOPATHY [None]
  - CHEST PAIN [None]
  - DYSPNOEA [None]
